FAERS Safety Report 6841955-5 (Version None)
Quarter: 2010Q3

REPORT INFORMATION
  Report Type: 
  Country: None (occurrence: None)
  Receive Date: 20100709
  Receipt Date: 20100625
  Transmission Date: 20110219
  Serious: Yes (Other)
  Sender: FDA-Public Use
  Company Number: AUR-APL-2010-01645

PATIENT
  Age: 76 Year
  Sex: Female

DRUGS (4)
  1. SIMVASTATIN [Suspect]
  2. HYDROCHLOROTHIAZIDE [Suspect]
  3. PANTOPRAZOLE [Suspect]
  4. L-THYROXIN 100 [Suspect]

REACTIONS (1)
  - WOUND TREATMENT [None]
